FAERS Safety Report 9089850 (Version 1)
Quarter: 2013Q1

REPORT INFORMATION
  Report Type: Spontaneous
  Country: GB (occurrence: GB)
  Receive Date: 20130201
  Receipt Date: 20130201
  Transmission Date: 20140127
  Serious: Yes (Other)
  Sender: FDA-Public Use
  Company Number: GB-ELI_LILLY_AND_COMPANY-GB201301009522

PATIENT
  Sex: Male

DRUGS (6)
  1. BYDUREON [Suspect]
     Indication: DIABETES MELLITUS
     Dosage: 2 MG, UNK
  2. ROSUVASTATIN [Concomitant]
     Dosage: UNK, 2/W
  3. CO-CODAMOL [Concomitant]
     Dosage: UNK, PRN
  4. CLOPIDOGREL [Concomitant]
  5. RABEPRAZOLE [Concomitant]
     Dosage: UNK, BID
  6. GLICLAZIDE [Concomitant]
     Indication: DIABETES MELLITUS

REACTIONS (10)
  - Intracranial aneurysm [Unknown]
  - Pancreatitis [Unknown]
  - Kidney infection [Unknown]
  - Barrett^s oesophagus [Unknown]
  - Myalgia [Unknown]
  - Muscular weakness [Unknown]
  - Insomnia [Unknown]
  - Abdominal pain upper [Unknown]
  - Blood glucose increased [Unknown]
  - Drug effect incomplete [Unknown]
